FAERS Safety Report 19394512 (Version 6)
Quarter: 2021Q3

REPORT INFORMATION
  Report Type: Report from Study
  Country: IL (occurrence: IL)
  Receive Date: 20210609
  Receipt Date: 20210907
  Transmission Date: 20211014
  Serious: Yes (Life-Threatening, Other)
  Sender: FDA-Public Use
  Company Number: IL-TAKEDA-2021TUS015805

PATIENT
  Age: 53 Year
  Sex: Male

DRUGS (3)
  1. VEDOLIZUMAB [Suspect]
     Active Substance: VEDOLIZUMAB
     Indication: COLITIS ULCERATIVE
     Dosage: 300 MILLIGRAM, Q4WEEKS
     Route: 042
     Dates: start: 20201115, end: 20210901
  2. CANNABIS [Suspect]
     Active Substance: CANNABIS SATIVA SUBSP. INDICA TOP
     Indication: PRODUCT USED FOR UNKNOWN INDICATION
     Dosage: UNK
     Route: 065
  3. VEDOLIZUMAB [Suspect]
     Active Substance: VEDOLIZUMAB
     Indication: CROHN^S DISEASE

REACTIONS (14)
  - Nausea [Recovered/Resolved]
  - Photopsia [Recovered/Resolved]
  - Infusion related reaction [Recovering/Resolving]
  - Aphthous ulcer [Recovering/Resolving]
  - Vomiting [Recovered/Resolved]
  - Abdominal pain lower [Recovering/Resolving]
  - Asthenia [Recovering/Resolving]
  - Dizziness [Not Recovered/Not Resolved]
  - Haematochezia [Recovering/Resolving]
  - Fatigue [Recovered/Resolved]
  - Nervousness [Recovering/Resolving]
  - Diarrhoea [Not Recovered/Not Resolved]
  - Back pain [Not Recovered/Not Resolved]
  - Seizure [Recovered/Resolved]

NARRATIVE: CASE EVENT DATE: 20210305
